FAERS Safety Report 10361468 (Version 1)
Quarter: 2014Q3

REPORT INFORMATION
  Report Type: Spontaneous
  Country: US (occurrence: US)
  Receive Date: 20140805
  Receipt Date: 20140805
  Transmission Date: 20150326
  Serious: Yes (Hospitalization, Disabling)
  Sender: FDA-Public Use
  Company Number: US-ROCHE-1440609

PATIENT
  Sex: Female

DRUGS (5)
  1. KLONOPIN [Suspect]
     Active Substance: CLONAZEPAM
     Indication: ANXIETY
  2. MORPHINE [Concomitant]
     Active Substance: MORPHINE
     Indication: PAIN
  3. VICODIN [Concomitant]
     Active Substance: ACETAMINOPHEN\HYDROCODONE BITARTRATE
     Indication: PAIN
  4. KLONOPIN [Suspect]
     Active Substance: CLONAZEPAM
     Indication: PANIC DISORDER
     Dosage: ONE EVERY 8 HRS AS NEEDED, MAX DOSE OF 3 A DAY
     Route: 065
  5. KLONOPIN [Suspect]
     Active Substance: CLONAZEPAM
     Indication: DEPRESSION

REACTIONS (10)
  - Palpitations [Unknown]
  - Drug ineffective [Unknown]
  - Post-traumatic stress disorder [Unknown]
  - Anxiety [Not Recovered/Not Resolved]
  - Insomnia [Not Recovered/Not Resolved]
  - Incorrect dose administered [Unknown]
  - Traumatic amputation [Unknown]
  - Hallucination [Unknown]
  - Blood pressure increased [Recovered/Resolved]
  - Nausea [Not Recovered/Not Resolved]
